FAERS Safety Report 19373764 (Version 5)
Quarter: 2021Q3

REPORT INFORMATION
  Report Type: Spontaneous
  Country: BR (occurrence: BR)
  Receive Date: 20210603
  Receipt Date: 20210921
  Transmission Date: 20211014
  Serious: Yes (Hospitalization)
  Sender: FDA-Public Use
  Company Number: BR-BIOMARINAP-BR-2021-136834

PATIENT
  Age: 13 Year
  Sex: Female
  Weight: 17 kg

DRUGS (2)
  1. NAGLAZYME [Suspect]
     Active Substance: GALSULFASE
     Indication: MUCOPOLYSACCHARIDOSIS VI
     Dosage: UNK, QW
     Route: 042
     Dates: start: 201012
  2. NAGLAZYME [Suspect]
     Active Substance: GALSULFASE
     Dosage: UNK, QW
     Route: 042
     Dates: start: 20200929

REACTIONS (2)
  - Postoperative wound infection [Recovering/Resolving]
  - Ear neoplasm [Recovering/Resolving]

NARRATIVE: CASE EVENT DATE: 20210426
